FAERS Safety Report 20189191 (Version 1)
Quarter: 2021Q4

REPORT INFORMATION
  Report Type: Spontaneous
  Country: US (occurrence: None)
  Receive Date: 20211215
  Receipt Date: 20211215
  Transmission Date: 20220303
  Serious: No
  Sender: FDA-Public Use
  Company Number: None

PATIENT
  Age: 23 Year
  Sex: Female
  Weight: 81 kg

DRUGS (2)
  1. SERTRALINE [Suspect]
     Active Substance: SERTRALINE HYDROCHLORIDE
     Indication: Depression
     Dosage: OTHER QUANTITY : 44 TABLET(S);?FREQUENCY : DAILY;?
     Route: 048
     Dates: start: 20210524, end: 20210526
  2. SERTRALINE [Suspect]
     Active Substance: SERTRALINE HYDROCHLORIDE
     Indication: Obsessive-compulsive disorder

REACTIONS (4)
  - Depressed mood [None]
  - Catatonia [None]
  - Movement disorder [None]
  - Speech disorder [None]

NARRATIVE: CASE EVENT DATE: 20210526
